FAERS Safety Report 9542366 (Version 1)
Quarter: 2013Q3

REPORT INFORMATION
  Report Type: Spontaneous
  Country: US (occurrence: None)
  Receive Date: 20130919
  Receipt Date: 20130919
  Transmission Date: 20140515
  Serious: No
  Sender: FDA-Public Use
  Company Number: None

PATIENT
  Age: 70 Year
  Sex: Female
  Weight: 61.24 kg

DRUGS (1)
  1. LEVAQUIN [Suspect]
     Route: 048

REACTIONS (5)
  - Joint swelling [None]
  - Joint stiffness [None]
  - Abasia [None]
  - Tendon disorder [None]
  - Tenderness [None]
